FAERS Safety Report 14292882 (Version 1)
Quarter: 2017Q4

REPORT INFORMATION
  Report Type: Spontaneous
  Country: US (occurrence: US)
  Receive Date: 20171215
  Receipt Date: 20171215
  Transmission Date: 20180321
  Serious: Yes (Other)
  Sender: FDA-Public Use
  Company Number: US-MYLANLABS-2017M1077873

PATIENT
  Age: 24 Year
  Sex: Male

DRUGS (5)
  1. EPOPROSTENOL. [Suspect]
     Active Substance: EPOPROSTENOL
     Dosage: 40 NG/KG/MIN
     Route: 050
  2. SALBUTAMOL [Concomitant]
     Active Substance: ALBUTEROL
     Indication: ACUTE RESPIRATORY DISTRESS SYNDROME
     Dosage: 90 MCG/ACTUATION; 8 PUFFS INHALED EVERY 4 HOURS
     Route: 055
  3. ACETYLCYSTEINE. [Suspect]
     Active Substance: ACETYLCYSTEINE
     Indication: RESPIRATORY FUME INHALATION DISORDER
     Dosage: 600 MG/3ML EVERY FOUR HOURS
     Route: 050
  4. HEPARIN [Suspect]
     Active Substance: HEPARIN SODIUM
     Indication: RESPIRATORY FUME INHALATION DISORDER
     Dosage: 10000 U/10ML EVERY FOUR HOURS
     Route: 050
  5. EPOPROSTENOL. [Suspect]
     Active Substance: EPOPROSTENOL
     Indication: ACUTE RESPIRATORY DISTRESS SYNDROME
     Dosage: 10 NG/KG/MIN
     Route: 050

REACTIONS (1)
  - Haemorrhage [Unknown]
